FAERS Safety Report 14635979 (Version 1)
Quarter: 2018Q1

REPORT INFORMATION
  Report Type: Report from Study
  Country: US (occurrence: US)
  Receive Date: 20180314
  Receipt Date: 20180314
  Transmission Date: 20180509
  Serious: No
  Sender: FDA-Public Use
  Company Number: PHEH2018US010045

PATIENT
  Age: 3 Year
  Sex: Male

DRUGS (1)
  1. OMNITROPE [Suspect]
     Active Substance: SOMATROPIN
     Indication: BODY HEIGHT BELOW NORMAL
     Dosage: 0.1 MG, QD
     Route: 058
     Dates: start: 20171130

REACTIONS (2)
  - Anger [Unknown]
  - Mood swings [Unknown]

NARRATIVE: CASE EVENT DATE: 20180219
